FAERS Safety Report 15749091 (Version 1)
Quarter: 2018Q4

REPORT INFORMATION
  Report Type: Spontaneous
  Country: US (occurrence: US)
  Receive Date: 20181205
  Receipt Date: 20181205
  Transmission Date: 20190205
  Serious: Yes (Hospitalization)
  Sender: FDA-Public Use
  Company Number: None

PATIENT
  Age: 68 Year
  Sex: Female

DRUGS (1)
  1. LETAIRIS [Suspect]
     Active Substance: AMBRISENTAN
     Indication: PULMONARY ARTERIAL HYPERTENSION
     Route: 048
     Dates: start: 20181029

REACTIONS (7)
  - Vomiting [None]
  - Hypovolaemia [None]
  - Asthenia [None]
  - Diarrhoea [None]
  - Syncope [None]
  - Orthostatic hypotension [None]
  - Right ventricular failure [None]
